FAERS Safety Report 5393816-9 (Version None)
Quarter: 2007Q3

REPORT INFORMATION
  Report Type: 
  Country: None (occurrence: None)
  Receive Date: 20070720
  Receipt Date: 20070720
  Transmission Date: 20080115
  Serious: Yes (Hospitalization)
  Sender: FDA-Public Use
  Company Number: None

PATIENT
  Sex: Female
  Weight: 77.7 kg

DRUGS (11)
  1. BEVACIZUMAB (RHUMAB VEGF) [Suspect]
     Dosage: 790 MG
     Dates: end: 20070711
  2. CAMPTOSAR [Suspect]
     Dosage: 640 MG
     Dates: end: 20070711
  3. ARANESP [Concomitant]
  4. CRESTOR [Concomitant]
  5. DULCOLAX [Concomitant]
  6. GLYBURIDE [Concomitant]
  7. IRON [Concomitant]
  8. LANTUS [Concomitant]
  9. LARRY SOLUTION [Concomitant]
  10. TYLENOL (CAPLET) [Concomitant]
  11. WARFARIN SODIUM [Concomitant]

REACTIONS (2)
  - ABDOMINAL PAIN [None]
  - PULMONARY EMBOLISM [None]
